FAERS Safety Report 14783365 (Version 1)
Quarter: 2018Q2

REPORT INFORMATION
  Report Type: Spontaneous
  Country: US (occurrence: US)
  Receive Date: 20180420
  Receipt Date: 20180420
  Transmission Date: 20180711
  Serious: Yes (Hospitalization)
  Sender: FDA-Public Use
  Company Number: US-ORPHAN EUROPE-2046142

PATIENT
  Sex: Male
  Weight: 7.1 kg

DRUGS (3)
  1. CARBAGLU [Suspect]
     Active Substance: CARGLUMIC ACID
  2. CARBAGLU [Suspect]
     Active Substance: CARGLUMIC ACID
     Indication: ACIDOSIS
     Dates: start: 20171213
  3. CARBAGLU [Suspect]
     Active Substance: CARGLUMIC ACID

REACTIONS (1)
  - Gastroenteritis [Recovered/Resolved]
